FAERS Safety Report 16970045 (Version 1)
Quarter: 2019Q4

REPORT INFORMATION
  Report Type: Spontaneous
  Country: TW (occurrence: TW)
  Receive Date: 20191029
  Receipt Date: 20191029
  Transmission Date: 20200122
  Serious: Yes (Hospitalization, Other)
  Sender: FDA-Public Use
  Company Number: TW-PFIZER INC-2019459453

PATIENT
  Age: 57 Year
  Sex: Male

DRUGS (4)
  1. NOREPINEPHRINE BITARTRATE. [Suspect]
     Active Substance: NOREPINEPHRINE BITARTRATE
     Indication: DECOMPRESSION SICKNESS
  2. DOPAMINE [Suspect]
     Active Substance: DOPAMINE HYDROCHLORIDE
     Indication: DECOMPRESSION SICKNESS
  3. NOREPINEPHRINE BITARTRATE. [Suspect]
     Active Substance: NOREPINEPHRINE BITARTRATE
     Indication: CARDIOVASCULAR EVENT PROPHYLAXIS
     Dosage: UNK (0.19 MCG/KG/MINUTE)
  4. DOPAMINE [Suspect]
     Active Substance: DOPAMINE HYDROCHLORIDE
     Indication: CARDIOVASCULAR EVENT PROPHYLAXIS
     Dosage: UNK (20 MCG/KG/MINUTE)

REACTIONS (4)
  - Coma [Recovered/Resolved]
  - Drug ineffective [Recovered/Resolved]
  - Anuria [Recovered/Resolved]
  - Shock [Recovered/Resolved]
